FAERS Safety Report 13476546 (Version 3)
Quarter: 2017Q3

REPORT INFORMATION
  Report Type: Report from Study
  Country: FR (occurrence: FR)
  Receive Date: 20170425
  Receipt Date: 20170811
  Transmission Date: 20171127
  Serious: Yes (Hospitalization)
  Sender: FDA-Public Use
  Company Number: FR-PFIZER INC-2017178339

PATIENT
  Age: 67 Year
  Sex: Female

DRUGS (2)
  1. ESTRACYT [Suspect]
     Active Substance: ESTRAMUSTINE PHOSPHATE SODIUM
     Indication: BREAST CANCER METASTATIC
     Dosage: 280 MG, 2X/DAY
     Route: 048
     Dates: start: 201011, end: 20110112
  2. ESTRACYT [Suspect]
     Active Substance: ESTRAMUSTINE PHOSPHATE SODIUM
     Dosage: 140 MG, 2X/DAY
     Route: 048
     Dates: start: 20110525, end: 20110719

REACTIONS (2)
  - Oedema peripheral [Recovered/Resolved]
  - Urinary retention [Recovered/Resolved]

NARRATIVE: CASE EVENT DATE: 201101
